FAERS Safety Report 4368271-8 (Version None)
Quarter: 2004Q2

REPORT INFORMATION
  Report Type: 
  Country: None (occurrence: None)
  Receive Date: 20040527
  Receipt Date: 20040513
  Transmission Date: 20050107
  Serious: Yes (Hospitalization)
  Sender: FDA-Public Use
  Company Number: BTOR2004-0003

PATIENT
  Age: 48 Year
  Sex: Female

DRUGS (2)
  1. FARESTON [Suspect]
     Indication: BREAST CANCER
     Dosage: ORAL
     Route: 048
     Dates: start: 19990723, end: 20040507
  2. FARESTON [Suspect]
     Indication: PROPHYLAXIS
     Dosage: ORAL
     Route: 048
     Dates: start: 19990723, end: 20040507

REACTIONS (1)
  - ENDOMETRIAL HYPERTROPHY [None]
